FAERS Safety Report 13708268 (Version 1)
Quarter: 2017Q2

REPORT INFORMATION
  Report Type: Spontaneous
  Country: CN (occurrence: CN)
  Receive Date: 20170630
  Receipt Date: 20170630
  Transmission Date: 20170830
  Serious: Yes (Death)
  Sender: FDA-Public Use
  Company Number: CN-HQ SPECIALTY-CN-2017INT000223

PATIENT
  Sex: Male

DRUGS (2)
  1. PEMETREXED. [Suspect]
     Active Substance: PEMETREXED
     Indication: OESOPHAGEAL SQUAMOUS CELL CARCINOMA
     Dosage: 500 MG/M2, UNK, ON DAY 1 EVERY 21 DAYS
  2. CISPLATIN. [Suspect]
     Active Substance: CISPLATIN
     Indication: OESOPHAGEAL SQUAMOUS CELL CARCINOMA
     Dosage: 25 MG/M2, QD ON DAYS 1-3 EVERY 21 DAYS
     Route: 042

REACTIONS (1)
  - Tracheo-oesophageal fistula [Fatal]
